FAERS Safety Report 5846660-X (Version None)
Quarter: 2008Q3

REPORT INFORMATION
  Report Type: 
  Country: None (occurrence: None)
  Receive Date: 20080815
  Receipt Date: 20080804
  Transmission Date: 20090109
  Serious: Yes (Hospitalization)
  Sender: FDA-Public Use
  Company Number: B0531923A

PATIENT
  Age: 43 Year
  Sex: Female

DRUGS (2)
  1. AUGMENTIN [Suspect]
     Indication: TONSILLITIS
     Dosage: 1G TWICE PER DAY
     Route: 048
     Dates: start: 20080131, end: 20080202
  2. PHENDIMETRAZINE [Suspect]
     Route: 065
     Dates: start: 20080102, end: 20080202

REACTIONS (3)
  - ABDOMINAL PAIN UPPER [None]
  - HEPATITIS [None]
  - VOMITING [None]
